FAERS Safety Report 14227990 (Version 2)
Quarter: 2017Q4

REPORT INFORMATION
  Report Type: Spontaneous
  Country: US (occurrence: US)
  Receive Date: 20171127
  Receipt Date: 20171222
  Transmission Date: 20180321
  Serious: Yes (Other)
  Sender: FDA-Public Use
  Company Number: US-PFIZER INC-2017462969

PATIENT
  Age: 31 Year
  Sex: Male

DRUGS (4)
  1. THYROXINE [Concomitant]
     Active Substance: LEVOTHYROXINE
     Indication: BACK PAIN
  2. LYRICA [Suspect]
     Active Substance: PREGABALIN
     Indication: PAIN IN EXTREMITY
     Dosage: UNK
  3. TRAZODONE [Concomitant]
     Active Substance: TRAZODONE HYDROCHLORIDE
     Indication: SLEEP DISORDER
     Dosage: 100 MG, 1X/DAY (AT BED TIME)
  4. THYROXINE [Concomitant]
     Active Substance: LEVOTHYROXINE
     Indication: PAIN IN EXTREMITY
     Dosage: UNK UNK, AS NEEDED (1 EVERY 6 HOURS AS NEEDED)

REACTIONS (5)
  - Craniocerebral injury [Unknown]
  - Fall [Unknown]
  - Concussion [Unknown]
  - Feeling abnormal [Unknown]
  - Loss of consciousness [Unknown]
